FAERS Safety Report 25033421 (Version 3)
Quarter: 2025Q4

REPORT INFORMATION
  Report Type: Report from Study
  Country: CA (occurrence: CA)
  Receive Date: 20250303
  Receipt Date: 20251031
  Transmission Date: 20260117
  Serious: Yes (Hospitalization, Other)
  Sender: LUNDBECK
  Company Number: CA-LUNDBECK-DKLU4008404

PATIENT
  Age: 37 Year
  Sex: Male

DRUGS (2)
  1. VYEPTI [Suspect]
     Active Substance: EPTINEZUMAB-JJMR
     Indication: Migraine
     Dosage: 300 MILLIGRAM
     Route: 041
     Dates: start: 20231128
  2. BOTOX [Concomitant]
     Active Substance: ONABOTULINUMTOXINA
     Indication: Product used for unknown indication

REACTIONS (7)
  - Migraine [Recovered/Resolved]
  - Nephrolithiasis [Unknown]
  - Therapeutic response shortened [Recovered/Resolved]
  - Headache [Recovered/Resolved]
  - Memory impairment [Not Recovered/Not Resolved]
  - Balance disorder [Not Recovered/Not Resolved]
  - Confusional state [Not Recovered/Not Resolved]

NARRATIVE: CASE EVENT DATE: 20241213
